FAERS Safety Report 7552290-4 (Version None)
Quarter: 2011Q2

REPORT INFORMATION
  Report Type: 
  Country: None (occurrence: None)
  Receive Date: 20110616
  Receipt Date: 20050330
  Transmission Date: 20111010
  Serious: Yes (Hospitalization, Other)
  Sender: FDA-Public Use
  Company Number: PHHO2005JP05343

PATIENT
  Sex: Male
  Weight: 65 kg

DRUGS (3)
  1. AMOBAN [Concomitant]
     Indication: INSOMNIA
     Dosage: 10 MG, QD
     Route: 048
     Dates: start: 20021016, end: 20040110
  2. NORVASC [Concomitant]
     Indication: HYPERTENSION
     Dosage: 10 MG, QD
     Route: 048
     Dates: start: 20021016, end: 20040110
  3. DIOVAN [Suspect]
     Dosage: 80 MG, QD
     Route: 048
     Dates: start: 20030913, end: 20040110

REACTIONS (3)
  - PLEURAL EFFUSION [None]
  - LUNG ADENOCARCINOMA [None]
  - COUGH [None]
